FAERS Safety Report 9058638 (Version 1)
Quarter: 2013Q1

REPORT INFORMATION
  Report Type: Spontaneous
  Country: FR (occurrence: FR)
  Receive Date: 20130211
  Receipt Date: 20130211
  Transmission Date: 20140127
  Serious: Yes (Hospitalization)
  Sender: FDA-Public Use
  Company Number: FR-SANOFI-AVENTIS-2013SA009979

PATIENT
  Age: 81 Year
  Sex: Female

DRUGS (13)
  1. KAYEXALATE [Suspect]
     Indication: PRODUCT USED FOR UNKNOWN INDICATION
     Route: 048
     Dates: start: 201109, end: 201211
  2. ROSUVASTATIN CALCIUM [Concomitant]
     Route: 048
     Dates: start: 201204, end: 201211
  3. EZETROL [Concomitant]
     Route: 048
     Dates: start: 201204, end: 201211
  4. SEROPLEX [Concomitant]
     Route: 048
  5. FERROUS SULFATE [Concomitant]
     Route: 048
  6. HEXAQUINE [Concomitant]
     Dosage: DOSE: 1 DOSE TWICE DAILY
  7. DAFALGAN [Concomitant]
  8. CALCIDOSE [Concomitant]
     Route: 048
  9. TRIATEC [Concomitant]
     Route: 048
  10. FUROSEMIDE [Concomitant]
     Route: 048
  11. NOVONORM [Concomitant]
     Indication: TYPE 2 DIABETES MELLITUS
     Route: 048
  12. DAONIL [Concomitant]
     Indication: TYPE 2 DIABETES MELLITUS
     Route: 048
  13. COKENZEN [Concomitant]
     Route: 048

REACTIONS (3)
  - Rhabdomyolysis [Recovered/Resolved]
  - Pain in extremity [Recovered/Resolved]
  - Hypokalaemia [Recovered/Resolved]
